FAERS Safety Report 7387458-3 (Version None)
Quarter: 2011Q1

REPORT INFORMATION
  Report Type: 
  Country: None (occurrence: None)
  Receive Date: 20110331
  Receipt Date: 20110328
  Transmission Date: 20110831
  Serious: Yes (Other)
  Sender: FDA-Public Use
  Company Number: US-ELI_LILLY_AND_COMPANY-US201103000229

PATIENT
  Weight: 96.145 kg

DRUGS (8)
  1. ASPIRIN [Concomitant]
     Indication: TYPE 2 DIABETES MELLITUS
     Dosage: UNK UNK, QD
     Dates: start: 20040101
  2. METFORMIN HCL [Concomitant]
     Indication: TYPE 2 DIABETES MELLITUS
     Dosage: 500 MG, BID
     Dates: start: 19990101
  3. CALCIUM MAGNESIUM [Concomitant]
     Dosage: UNK, BID
     Dates: start: 20010101
  4. ZOVIRAX                            /00587301/ [Concomitant]
     Dosage: UNK, EACH EVENING
     Dates: start: 20090101
  5. BYETTA [Suspect]
     Indication: TYPE 2 DIABETES MELLITUS
     Dosage: 5 UG BID
     Route: 058
     Dates: start: 20070521
  6. AVAPRO [Concomitant]
     Indication: HYPERTENSION
     Dosage: 100 MG, QD
     Dates: start: 20100101
  7. VITAMIN D [Concomitant]
     Indication: VITAMIN D DEFICIENCY
     Dosage: UNK
  8. BYETTA [Suspect]
     Dosage: 10 UG, BID
     Route: 058

REACTIONS (2)
  - PANCREATITIS [None]
  - WEIGHT DECREASED [None]
